FAERS Safety Report 18461959 (Version 1)
Quarter: 2020Q4

REPORT INFORMATION
  Report Type: Spontaneous
  Country: ES (occurrence: ES)
  Receive Date: 20201104
  Receipt Date: 20201104
  Transmission Date: 20210114
  Serious: Yes (Other)
  Sender: FDA-Public Use
  Company Number: NVSC2020ES293690

PATIENT
  Age: 36 Year
  Sex: Male

DRUGS (1)
  1. CYCLOSPORINE. [Suspect]
     Active Substance: CYCLOSPORINE
     Indication: PITYRIASIS RUBRA PILARIS
     Dosage: 4 MG/KG, QD
     Route: 065

REACTIONS (2)
  - Dermatitis exfoliative generalised [Unknown]
  - Product use in unapproved indication [Unknown]
